FAERS Safety Report 22050595 (Version 1)
Quarter: 2023Q1

REPORT INFORMATION
  Report Type: Spontaneous
  Country: US (occurrence: None)
  Receive Date: 20230228
  Receipt Date: 20230228
  Transmission Date: 20230417
  Serious: Yes (Life-Threatening)
  Sender: FDA-Public Use
  Company Number: None

PATIENT
  Age: 60 Year
  Sex: Male
  Weight: 55.79 kg

DRUGS (25)
  1. CEFDINIR [Suspect]
     Active Substance: CEFDINIR
     Indication: Bronchitis
     Dosage: FREQUENCY : TWICE A DAY;?
     Route: 048
     Dates: start: 20230123, end: 20230123
  2. CEFDINIR [Suspect]
     Active Substance: CEFDINIR
     Indication: Pharyngitis streptococcal
  3. ALBUTEROL SULFATE [Concomitant]
     Active Substance: ALBUTEROL SULFATE
  4. TRAZODONE [Concomitant]
     Active Substance: TRAZODONE HYDROCHLORIDE
  5. TIZANIDINE [Concomitant]
     Active Substance: TIZANIDINE
  6. BUSPIRONE [Concomitant]
     Active Substance: BUSPIRONE HYDROCHLORIDE
  7. DULOXETINE [Concomitant]
     Active Substance: DULOXETINE
  8. ACETAMINOPHEN [Concomitant]
     Active Substance: ACETAMINOPHEN
  9. VITAMIN B COMPLEX [Concomitant]
     Active Substance: CYANOCOBALAMIN\DEXPANTHENOL\NIACINAMIDE\PYRIDOXINE HYDROCHLORIDE\RIBOFLAVIN 5^-PHOSPHATE SODIUM\THIA
  10. BISACODYL [Concomitant]
     Active Substance: BISACODYL
  11. CETIRIZINE [Concomitant]
     Active Substance: CETIRIZINE HYDROCHLORIDE
  12. FERROUS SULFATE [Concomitant]
     Active Substance: FERROUS SULFATE
  13. FOLIC ACID [Concomitant]
     Active Substance: FOLIC ACID
  14. CHONDROITIN SULFATE (BOVINE)\GLUCOSAMINE SULFATE [Concomitant]
     Active Substance: CHONDROITIN SULFATE (BOVINE)\GLUCOSAMINE SULFATE
  15. Magnesium-Zinc [Concomitant]
  16. VITAMINS [Concomitant]
     Active Substance: VITAMINS
  17. OMEGA 3 [Concomitant]
     Active Substance: CAPSAICIN
  18. ONDANSETRON [Concomitant]
     Active Substance: ONDANSETRON
  19. POLYETHYLENE GLYCOL [Concomitant]
     Active Substance: POLYETHYLENE GLYCOL
  20. TIZANIDINE [Concomitant]
     Active Substance: TIZANIDINE
  21. VITAMIN A [Concomitant]
     Active Substance: VITAMIN A
  22. VITAMIN C [Concomitant]
     Active Substance: ASCORBIC ACID
  23. ERGOCALCIFEROL [Concomitant]
     Active Substance: ERGOCALCIFEROL
  24. VITAMIN E [Concomitant]
     Active Substance: .ALPHA.-TOCOPHEROL
  25. Vitamin K2-Vitamin D3 [Concomitant]

REACTIONS (2)
  - Paraesthesia oral [None]
  - Swollen tongue [None]

NARRATIVE: CASE EVENT DATE: 20230123
